FAERS Safety Report 10995370 (Version 4)
Quarter: 2015Q2

REPORT INFORMATION
  Report Type: Report from Study
  Country: BR (occurrence: BR)
  Receive Date: 20150407
  Receipt Date: 20150605
  Transmission Date: 20150821
  Serious: Yes (Other)
  Sender: FDA-Public Use
  Company Number: PHHY2015BR037368

PATIENT
  Age: 36 Year
  Sex: Male
  Weight: 58 kg

DRUGS (3)
  1. SANDOSTATIN LAR DEPOT [Suspect]
     Active Substance: OCTREOTIDE ACETATE
     Indication: NEUROENDOCRINE TUMOUR
     Dosage: 2 DF (20 MG), QMO
     Route: 030
     Dates: start: 201403, end: 201501
  2. SANDOSTATIN LAR DEPOT [Suspect]
     Active Substance: OCTREOTIDE ACETATE
     Dosage: 2 DF (30 MG), QMO
     Route: 030
     Dates: start: 201501
  3. ZOMETA [Concomitant]
     Active Substance: ZOLEDRONIC ACID
     Indication: NEUROENDOCRINE TUMOUR
     Dosage: 1 DF, QMO
     Route: 042
     Dates: start: 201402

REACTIONS (3)
  - Bone neoplasm [Not Recovered/Not Resolved]
  - Pancreatic neoplasm [Not Recovered/Not Resolved]
  - Injection site pain [Recovered/Resolved]

NARRATIVE: CASE EVENT DATE: 201402
